FAERS Safety Report 15284601 (Version 1)
Quarter: 2018Q3

REPORT INFORMATION
  Report Type: Spontaneous
  Country: US (occurrence: US)
  Receive Date: 20180801
  Receipt Date: 20180801
  Transmission Date: 20181010
  Serious: Yes (Other)
  Sender: FDA-Public Use
  Company Number: None

PATIENT
  Age: 79 Year
  Sex: Male
  Weight: 75.42 kg

DRUGS (15)
  1. CITALOPRAM [Concomitant]
     Active Substance: CITALOPRAM HYDROBROMIDE
  2. ELIQUIS [Concomitant]
     Active Substance: APIXABAN
  3. MULTIVITAMINS [Concomitant]
     Active Substance: VITAMINS
  4. REVLIMID [Concomitant]
     Active Substance: LENALIDOMIDE
  5. VITAMIN D3 [Concomitant]
     Active Substance: CHOLECALCIFEROL
  6. VITAMIN B12 [Concomitant]
     Active Substance: CYANOCOBALAMIN
  7. KLOR?CON [Concomitant]
     Active Substance: POTASSIUM CHLORIDE
  8. PANTOPRAZOLE [Concomitant]
     Active Substance: PANTOPRAZOLE
  9. ATORVASTATIN [Concomitant]
     Active Substance: ATORVASTATIN
  10. NINLARO [Suspect]
     Active Substance: IXAZOMIB CITRATE
     Indication: PLASMA CELL MYELOMA
     Route: 048
     Dates: start: 20180619
  11. AMLODIPINE [Concomitant]
     Active Substance: AMLODIPINE BESYLATE
  12. CALCIUM [Concomitant]
     Active Substance: CALCIUM
  13. DEXAMETHASONE. [Concomitant]
     Active Substance: DEXAMETHASONE
  14. MAGNESIUM [Concomitant]
     Active Substance: MAGNESIUM
  15. SEROQUEL [Concomitant]
     Active Substance: QUETIAPINE FUMARATE

REACTIONS (1)
  - Disease progression [None]
